FAERS Safety Report 5509027-X (Version None)
Quarter: 2007Q4

REPORT INFORMATION
  Report Type: 
  Country: None (occurrence: None)
  Receive Date: 20071107
  Receipt Date: 20071101
  Transmission Date: 20080405
  Serious: Yes (Hospitalization, Other)
  Sender: FDA-Public Use
  Company Number: BR-JNJFOC-20071007309

PATIENT
  Age: 25 Year
  Sex: Male

DRUGS (5)
  1. HALOPERIDOL [Suspect]
     Indication: AGITATION
  2. VENLAFAXINE HCL [Interacting]
     Indication: DEPRESSION
  3. MIDAZOLAM HCL [Concomitant]
     Indication: AGITATION
  4. PROPOFOL [Concomitant]
  5. FENTANYL [Concomitant]

REACTIONS (5)
  - COMPARTMENT SYNDROME [None]
  - DRUG INTERACTION [None]
  - GAIT DISTURBANCE [None]
  - PERONEAL NERVE INJURY [None]
  - RHABDOMYOLYSIS [None]
